FAERS Safety Report 9551911 (Version 1)
Quarter: 2013Q3

REPORT INFORMATION
  Report Type: Spontaneous
  Country: US (occurrence: None)
  Receive Date: 20130724
  Receipt Date: 20130724
  Transmission Date: 20140515
  Serious: Yes (Other)
  Sender: FDA-Public Use
  Company Number: PHEH2012US024702

PATIENT
  Sex: Male

DRUGS (3)
  1. GLEEVEC [Suspect]
     Indication: GASTRIC CANCER
     Route: 048
  2. CARBIDOPA/LEVODOPA (CARBIDOPA, LEVODOPA) [Concomitant]
  3. LORAZEPAM (LORAZEPAM) [Concomitant]

REACTIONS (2)
  - Malignant neoplasm progression [None]
  - Gastric cancer [None]
